FAERS Safety Report 6339444-X (Version None)
Quarter: 2009Q3

REPORT INFORMATION
  Report Type: 
  Country: None (occurrence: None)
  Receive Date: 20090903
  Receipt Date: 20090827
  Transmission Date: 20100115
  Serious: Yes (Hospitalization)
  Sender: FDA-Public Use
  Company Number: US-ELI_LILLY_AND_COMPANY-US200907005552

PATIENT
  Age: 58 Year
  Sex: Female
  Weight: 67.574 kg

DRUGS (6)
  1. BYETTA [Suspect]
     Indication: TYPE 2 DIABETES MELLITUS
     Dosage: 5 UG, 2/D
     Route: 058
     Dates: start: 20060918, end: 20060101
  2. BYETTA [Suspect]
     Dosage: 10 UG, 2/D
     Dates: start: 20060101, end: 20090201
  3. BYETTA [Suspect]
     Dosage: UNK, UNKNOWN
     Dates: start: 20090601, end: 20090720
  4. METFORMIN HCL [Concomitant]
     Indication: DIABETES MELLITUS
     Dosage: 1000 MG, UNK
  5. LISINOPRIL [Concomitant]
     Indication: MICROALBUMINURIA
     Dosage: 2.5 MG, DAILY (1/D)
     Dates: start: 20080201
  6. CRESTOR [Concomitant]
     Indication: DYSLIPIDAEMIA
     Dosage: 40 MG, DAILY (1/D)
     Dates: start: 20081101

REACTIONS (3)
  - CHOLECYSTITIS [None]
  - PANCREATITIS HAEMORRHAGIC [None]
  - WEIGHT DECREASED [None]
